FAERS Safety Report 17528949 (Version 1)
Quarter: 2020Q1

REPORT INFORMATION
  Report Type: Spontaneous
  Country: JP (occurrence: JP)
  Receive Date: 20200312
  Receipt Date: 20200312
  Transmission Date: 20200409
  Serious: Yes (Other)
  Sender: FDA-Public Use
  Company Number: JP-ROCHE-2566914

PATIENT
  Age: 69 Year
  Sex: Female
  Weight: 70 kg

DRUGS (1)
  1. ACTEMRA [Suspect]
     Active Substance: TOCILIZUMAB
     Indication: STILL^S DISEASE
     Dosage: DOSE INTERVAL UNCERTAINTY
     Route: 041

REACTIONS (1)
  - Retinal haemorrhage [Unknown]
